FAERS Safety Report 5025770-3 (Version None)
Quarter: 2006Q2

REPORT INFORMATION
  Report Type: 
  Country: None (occurrence: None)
  Receive Date: 20060614
  Receipt Date: 20050711
  Transmission Date: 20061013
  Serious: Yes (Other)
  Sender: FDA-Public Use
  Company Number: DE-AVENTIS-200511465DE

PATIENT
  Age: 37 Year
  Sex: Female

DRUGS (4)
  1. CLEXANE [Suspect]
     Indication: THROMBOSIS PROPHYLAXIS
     Route: 058
     Dates: start: 20050101
  2. CLEXANE [Suspect]
     Route: 058
     Dates: start: 20050101
  3. MULTIVITAMINS W/MINERALS [Concomitant]
  4. FOLSAEURE [Concomitant]

REACTIONS (4)
  - AMNIOTIC FLUID VOLUME DECREASED [None]
  - BREECH PRESENTATION [None]
  - CAESAREAN SECTION [None]
  - DRUG EXPOSURE DURING PREGNANCY [None]
